FAERS Safety Report 5814553-X (Version None)
Quarter: 2008Q3

REPORT INFORMATION
  Report Type: 
  Country: None (occurrence: None)
  Receive Date: 20080718
  Receipt Date: 20070827
  Transmission Date: 20090109
  Serious: No
  Sender: FDA-Public Use
  Company Number: US-KINGPHARMUSA00001-K200701120

PATIENT

DRUGS (1)
  1. LEVOXYL [Suspect]
     Indication: HYPOTHYROIDISM

REACTIONS (4)
  - ABDOMINAL DISTENSION [None]
  - MUSCULOSKELETAL STIFFNESS [None]
  - PAIN [None]
  - WEIGHT INCREASED [None]
